FAERS Safety Report 18381419 (Version 1)
Quarter: 2020Q4

REPORT INFORMATION
  Report Type: Spontaneous
  Country: BR (occurrence: BR)
  Receive Date: 20201014
  Receipt Date: 20201014
  Transmission Date: 20210114
  Serious: Yes (Hospitalization, Other)
  Sender: FDA-Public Use
  Company Number: BR-LEADINGPHARMA-BR-2020LEALIT00151

PATIENT
  Age: 72 Year
  Sex: Female

DRUGS (4)
  1. FUROSEMIDE TABLETS USP [Suspect]
     Active Substance: FUROSEMIDE
     Indication: OEDEMA PERIPHERAL
  2. FUROSEMIDE TABLETS USP [Suspect]
     Active Substance: FUROSEMIDE
     Indication: OLIGURIA
  3. METHYLPREDNISOLONE. [Concomitant]
     Active Substance: METHYLPREDNISOLONE
     Indication: LARYNGOSPASM
     Dosage: 75 MG 8/8H
     Route: 042
  4. FUROSEMIDE TABLETS USP [Suspect]
     Active Substance: FUROSEMIDE
     Indication: PULMONARY CONGESTION
     Route: 042

REACTIONS (5)
  - Hypokalaemia [Recovered/Resolved]
  - Renal impairment [Recovering/Resolving]
  - Hypernatraemia [Recovered/Resolved]
  - Hypervolaemia [Recovered/Resolved]
  - Metabolic alkalosis [Recovered/Resolved]
